FAERS Safety Report 7186631-7 (Version None)
Quarter: 2010Q4

REPORT INFORMATION
  Report Type: 
  Country: None (occurrence: None)
  Receive Date: 20101222
  Receipt Date: 20101208
  Transmission Date: 20110411
  Serious: Yes (Other)
  Sender: FDA-Public Use
  Company Number: US-ROCHE-727603

PATIENT
  Sex: Male
  Weight: 53.1 kg

DRUGS (1)
  1. ACCUTANE [Suspect]
     Indication: ACNE
     Route: 048
     Dates: start: 19850315, end: 19851205

REACTIONS (15)
  - ABDOMINAL PAIN [None]
  - ANAEMIA [None]
  - ANXIETY [None]
  - BIPOLAR DISORDER [None]
  - COLITIS ISCHAEMIC [None]
  - COLITIS ULCERATIVE [None]
  - CONVULSION [None]
  - DEPRESSION [None]
  - INFLAMMATORY BOWEL DISEASE [None]
  - NAUSEA [None]
  - PANIC DISORDER [None]
  - RECTAL HAEMORRHAGE [None]
  - SCHIZOPHRENIA, PARANOID TYPE [None]
  - SMALL INTESTINAL OBSTRUCTION [None]
  - SUICIDAL IDEATION [None]
